FAERS Safety Report 8317692 (Version 2)
Quarter: 2013Q2

REPORT INFORMATION
  Report Type: Report from Study
  Country: VE (occurrence: VE)
  Receive Date: 20120102
  Receipt Date: 20130501
  Transmission Date: 20140414
  Serious: Yes (Hospitalization)
  Sender: FDA-Public Use
  Company Number: PHHY2011VE113449

PATIENT
  Age: 61 Year
  Sex: Female

DRUGS (8)
  1. ACLASTA [Suspect]
     Indication: OSTEOPOROSIS
     Dosage: 5 MG ANNUALLY
     Route: 042
     Dates: start: 200808
  2. ACLASTA [Suspect]
     Dosage: 5 MG ANNUALLY
     Route: 042
     Dates: start: 200908
  3. ACLASTA [Suspect]
     Dosage: 5 MG ANNUALLY
     Route: 042
     Dates: start: 201105
  4. BENICAR HCT [Concomitant]
     Indication: HYPERTENSION
     Dosage: 20 MG, UNK
     Route: 048
  5. OMEPRAZOLE [Concomitant]
     Dosage: 20 MG(DAILY), UNK
     Route: 048
  6. CORASPIRINA [Concomitant]
     Indication: CARDIOVASCULAR DISORDER
     Dosage: 81 MG, UNK
     Route: 048
  7. LIPITOR [Concomitant]
     Indication: BLOOD CHOLESTEROL ABNORMAL
     Dosage: 40 MG, UNK
     Route: 048
  8. IRIDUS [Concomitant]
     Dosage: 200 MG, UNK
     Route: 048

REACTIONS (4)
  - Diverticulitis [Recovered/Resolved]
  - Tinnitus [Recovering/Resolving]
  - Pain [Unknown]
  - Malaise [Not Recovered/Not Resolved]
